FAERS Safety Report 6454860-3 (Version None)
Quarter: 2009Q4

REPORT INFORMATION
  Report Type: 
  Country: None (occurrence: None)
  Receive Date: 20091124
  Receipt Date: 20091117
  Transmission Date: 20100525
  Serious: Yes (Hospitalization)
  Sender: FDA-Public Use
  Company Number: JP-PFIZER INC-2009296037

PATIENT
  Age: 1 Month
  Sex: Male
  Weight: 3.65 kg

DRUGS (6)
  1. SILDENAFIL CITRATE [Suspect]
     Indication: PULMONARY HYPERTENSION
     Dosage: 1 MG, 4X/DAY
     Route: 048
     Dates: start: 20090303
  2. SILDENAFIL CITRATE [Suspect]
     Indication: SCIMITAR SYNDROME
  3. FLOLAN [Concomitant]
     Indication: PULMONARY HYPERTENSION
     Dosage: 0.192 MG, 1X/DAY
     Dates: start: 20090206, end: 20090831
  4. MIDAZOLAM HCL [Concomitant]
     Dates: end: 20090608
  5. CORETEC [Concomitant]
     Indication: PULMONARY HYPERTENSION
     Dosage: 0.48 MG, 1X/DAY
     Dates: end: 20090407
  6. OXYGEN [Concomitant]
     Indication: PULMONARY HYPERTENSION
     Dosage: UNK
     Dates: start: 20090121

REACTIONS (1)
  - RESTLESSNESS [None]
